FAERS Safety Report 13441543 (Version 8)
Quarter: 2021Q2

REPORT INFORMATION
  Report Type: Other
  Country: FR (occurrence: FR)
  Receive Date: 20170413
  Receipt Date: 20210615
  Transmission Date: 20210716
  Serious: Yes (Other)
  Sender: FDA-Public Use
  Company Number: FR-ROCHE-1918304

PATIENT

DRUGS (3)
  1. RITUXIMAB. [Suspect]
     Active Substance: RITUXIMAB
     Indication: PEMPHIGUS
     Dosage: DAYS 1 AND 14 AFTER RANDOMISATION
     Route: 042
  2. PREDNISONE. [Suspect]
     Active Substance: PREDNISONE
     Indication: PEMPHIGUS
     Route: 048
  3. RITUXIMAB. [Suspect]
     Active Substance: RITUXIMAB
     Dosage: MONTHS 12 AND 18
     Route: 042

REACTIONS (30)
  - Staphylococcal sepsis [Unknown]
  - Herpes simplex [Unknown]
  - Hepatic cytolysis [Unknown]
  - Myopathy [Unknown]
  - Nasal septum perforation [Unknown]
  - Neuropathy peripheral [Unknown]
  - Muscle disorder [Unknown]
  - Intervertebral discitis [Unknown]
  - Myalgia [Unknown]
  - Pneumocystis jirovecii pneumonia [Unknown]
  - Cardiac failure [Unknown]
  - Spinal fracture [Unknown]
  - Arthralgia [Unknown]
  - Osteoporotic fracture [Unknown]
  - Infective thrombosis [Unknown]
  - Venous thrombosis limb [Unknown]
  - Weight increased [Unknown]
  - Sepsis [Unknown]
  - Rotator cuff syndrome [Unknown]
  - Pneumonia [Unknown]
  - Psoriatic arthropathy [Unknown]
  - Deep vein thrombosis [Unknown]
  - Pulmonary embolism [Unknown]
  - Depression [Unknown]
  - Femur fracture [Unknown]
  - Wrist fracture [Unknown]
  - Cushing^s syndrome [Unknown]
  - Skin atrophy [Unknown]
  - Headache [Unknown]
  - Hypotension [Unknown]
